FAERS Safety Report 23084365 (Version 1)
Quarter: 2023Q4

REPORT INFORMATION
  Report Type: Spontaneous
  Country: US (occurrence: US)
  Receive Date: 20231019
  Receipt Date: 20231019
  Transmission Date: 20240110
  Serious: Yes (Hospitalization, Other)
  Sender: FDA-Public Use
  Company Number: US-UNITED THERAPEUTICS-UNT-2023-029341

PATIENT
  Age: 76 Year
  Sex: Female

DRUGS (3)
  1. TYVASO [Suspect]
     Active Substance: TREPROSTINIL
     Indication: Pulmonary arterial hypertension
     Dosage: UNK
  2. OPSUMIT [Concomitant]
     Active Substance: MACITENTAN
     Indication: Pulmonary arterial hypertension
     Dosage: UNK
     Route: 065
  3. OXYGEN [Concomitant]
     Active Substance: OXYGEN
     Indication: Pulmonary arterial hypertension
     Dosage: UNK
     Route: 065

REACTIONS (8)
  - Hypoxia [Not Recovered/Not Resolved]
  - Pericarditis [Unknown]
  - Ventilation perfusion mismatch [Unknown]
  - Pericardial effusion [Unknown]
  - Post procedural complication [Unknown]
  - Pulmonary embolism [Unknown]
  - Infection [Unknown]
  - Atelectasis [Unknown]
